FAERS Safety Report 11916312 (Version 1)
Quarter: 2016Q1

REPORT INFORMATION
  Report Type: Spontaneous
  Country: US (occurrence: US)
  Receive Date: 20160114
  Receipt Date: 20160114
  Transmission Date: 20160526
  Serious: Yes (Other)
  Sender: FDA-Public Use
  Company Number: US-SA-2016SA003940

PATIENT
  Age: 53 Year
  Sex: Female

DRUGS (1)
  1. THYROGEN [Suspect]
     Active Substance: THYROTROPIN ALFA
     Indication: DIAGNOSTIC PROCEDURE
     Route: 065
     Dates: start: 2007, end: 2007

REACTIONS (3)
  - Blood thyroid stimulating hormone increased [Unknown]
  - Metastatic neoplasm [Unknown]
  - Thyroxine increased [Unknown]
